FAERS Safety Report 10246256 (Version 1)
Quarter: 2014Q2

REPORT INFORMATION
  Report Type: Spontaneous
  Country: AU (occurrence: AU)
  Receive Date: 20140619
  Receipt Date: 20140619
  Transmission Date: 20141212
  Serious: Yes (Other)
  Sender: FDA-Public Use
  Company Number: AU-MYLANLABS-2014S1013545

PATIENT
  Sex: Male

DRUGS (1)
  1. VALPRO [Suspect]
     Indication: EPILEPSY
     Dates: end: 20140605

REACTIONS (3)
  - Drug ineffective [Recovered/Resolved]
  - Convulsion [Recovered/Resolved]
  - Product substitution issue [Recovered/Resolved]
